FAERS Safety Report 15164411 (Version 1)
Quarter: 2018Q3

REPORT INFORMATION
  Report Type: Spontaneous
  Country: SE (occurrence: SE)
  Receive Date: 20180719
  Receipt Date: 20180719
  Transmission Date: 20181010
  Serious: Yes (Hospitalization)
  Sender: FDA-Public Use
  Company Number: SE-TEVA-2018-SE-927964

PATIENT
  Age: 63 Year
  Sex: Male

DRUGS (15)
  1. GLYCERYL TRINITRATE [Concomitant]
     Active Substance: NITROGLYCERIN
  2. OXASCAND [Concomitant]
     Active Substance: OXAZEPAM
  3. INOLAXOL [Concomitant]
     Active Substance: HERBALS\KARAYA GUM
  4. ENALAPRIL [Concomitant]
     Active Substance: ENALAPRIL
  5. ATORVASTATIN [Concomitant]
     Active Substance: ATORVASTATIN
  6. BETOLVEX [Concomitant]
     Active Substance: CYANOCOBALAMIN
  7. CITALOPRAM [Concomitant]
     Active Substance: CITALOPRAM HYDROBROMIDE
  8. ALVEDON [Concomitant]
     Active Substance: ACETAMINOPHEN
  9. MIRTAZAPINE. [Concomitant]
     Active Substance: MIRTAZAPINE
  10. RISPERIDONE. [Suspect]
     Active Substance: RISPERIDONE
     Indication: AGGRESSION
     Route: 065
     Dates: start: 20180516, end: 20180531
  11. CLOPIDOGREL [Concomitant]
     Active Substance: CLOPIDOGREL BISULFATE
  12. ISOPHANE INSULIN [Concomitant]
     Active Substance: INSULIN NOS
  13. ZOPICLONE [Concomitant]
     Active Substance: ZOPICLONE
  14. NOVORAPID [Concomitant]
     Active Substance: INSULIN ASPART
  15. OMEPRAZOLE. [Concomitant]
     Active Substance: OMEPRAZOLE

REACTIONS (2)
  - Mobility decreased [Unknown]
  - Tremor [Unknown]

NARRATIVE: CASE EVENT DATE: 201805
